FAERS Safety Report 4629970-3 (Version None)
Quarter: 2005Q2

REPORT INFORMATION
  Report Type: 
  Country: None (occurrence: None)
  Receive Date: 20050408
  Receipt Date: 20050330
  Transmission Date: 20051028
  Serious: Yes (Hospitalization)
  Sender: FDA-Public Use
  Company Number: FR-BRISTOL-MYERS SQUIBB COMPANY-12918058

PATIENT
  Age: 46 Year
  Sex: Male
  Weight: 64 kg

DRUGS (10)
  1. VIDEX EC [Suspect]
     Indication: HIV INFECTION
     Route: 048
     Dates: start: 20030101
  2. COMBIVIR [Suspect]
     Indication: HIV INFECTION
     Dates: start: 20030101
  3. VIREAD [Suspect]
     Indication: HIV INFECTION
     Dates: start: 20030101, end: 20040504
  4. RETROVIR [Suspect]
  5. KALETRA [Concomitant]
  6. BACTRIM [Concomitant]
  7. AZADOSE [Concomitant]
  8. TRIFLUCAN [Concomitant]
  9. IMODIUM [Concomitant]
  10. STILNOX [Concomitant]

REACTIONS (3)
  - DRUG INEFFECTIVE [None]
  - LEUKOPENIA [None]
  - RENAL TUBULAR DISORDER [None]
